FAERS Safety Report 20336844 (Version 1)
Quarter: 2022Q1

REPORT INFORMATION
  Report Type: Spontaneous
  Country: JP (occurrence: JP)
  Receive Date: 20220114
  Receipt Date: 20220114
  Transmission Date: 20220423
  Serious: Yes (Hospitalization, Other)
  Sender: FDA-Public Use
  Company Number: JP-LUPIN PHARMACEUTICALS INC.-2022-00202

PATIENT
  Age: 37 Year
  Sex: Female

DRUGS (3)
  1. METHYLPREDNISOLONE [Suspect]
     Active Substance: METHYLPREDNISOLONE
     Indication: Henoch-Schonlein purpura
     Dosage: PULSE THERAPY
     Route: 065
     Dates: start: 201903
  2. PREDNISOLONE [Suspect]
     Active Substance: PREDNISOLONE
     Indication: Henoch-Schonlein purpura
     Dosage: 30 MILLIGRAM, QD
     Route: 048
     Dates: start: 2017
  3. PREDNISOLONE [Suspect]
     Active Substance: PREDNISOLONE
     Dosage: TAPERED DOWN TO 1 MG
     Route: 048
     Dates: start: 201902

REACTIONS (2)
  - Adenocarcinoma of colon [Recovering/Resolving]
  - Neoplasm progression [Recovering/Resolving]

NARRATIVE: CASE EVENT DATE: 20200101
